FAERS Safety Report 9549353 (Version 1)
Quarter: 2013Q3

REPORT INFORMATION
  Report Type: Spontaneous
  Country: US (occurrence: None)
  Receive Date: 20130923
  Receipt Date: 20130923
  Transmission Date: 20140515
  Serious: Yes (Hospitalization)
  Sender: FDA-Public Use
  Company Number: None

PATIENT
  Age: 50 Year
  Sex: Male

DRUGS (1)
  1. ABILIFY [Suspect]
     Dates: start: 20130716, end: 20130716

REACTIONS (9)
  - Fall [None]
  - Dizziness [None]
  - Mental status changes [None]
  - Cognitive disorder [None]
  - Confusional state [None]
  - Asthenia [None]
  - Wernicke^s encephalopathy [None]
  - Hypokinesia [None]
  - Convulsion [None]
